FAERS Safety Report 8310614-4 (Version None)
Quarter: 2012Q2

REPORT INFORMATION
  Report Type: 
  Country: None (occurrence: None)
  Receive Date: 20120425
  Receipt Date: 20120425
  Transmission Date: 20120825
  Serious: Yes (Death)
  Sender: FDA-Public Use
  Company Number: None

PATIENT
  Sex: Male

DRUGS (1)
  1. HUMIRA [Suspect]
     Indication: PSORIASIS
     Dosage: 40MG/0.8ML SC KIT
     Route: 058
     Dates: start: 20091201, end: 20110119

REACTIONS (4)
  - PNEUMONIA [None]
  - DISORIENTATION [None]
  - CARDIO-RESPIRATORY ARREST [None]
  - BRONCHITIS [None]
